FAERS Safety Report 18341819 (Version 1)
Quarter: 2020Q4

REPORT INFORMATION
  Report Type: Spontaneous
  Country: FR (occurrence: FR)
  Receive Date: 20201005
  Receipt Date: 20201005
  Transmission Date: 20210113
  Serious: Yes (Hospitalization)
  Sender: FDA-Public Use
  Company Number: FR-SUN PHARMACEUTICAL INDUSTRIES LTD-2020RR-263118

PATIENT
  Age: 75 Year
  Sex: Female

DRUGS (8)
  1. EPITOMAX [Suspect]
     Active Substance: TOPIRAMATE
     Indication: PRODUCT PRESCRIBING ERROR
     Dosage: 150 MILLIGRAM, DAILY
     Route: 048
     Dates: start: 20200723, end: 20200727
  2. PREGABALIN. [Suspect]
     Active Substance: PREGABALIN
     Indication: PRODUCT PRESCRIBING ERROR
     Dosage: 100 MILLIGRAM, DAILY
     Route: 048
     Dates: start: 20200723, end: 20200727
  3. SPIRONOLACTONE. [Suspect]
     Active Substance: SPIRONOLACTONE
     Indication: PRODUCT PRESCRIBING ERROR
     Dosage: 25 MILLIGRAM, DAILY
     Route: 048
     Dates: start: 20200723, end: 20200727
  4. ALPRAZOLAM. [Suspect]
     Active Substance: ALPRAZOLAM
     Indication: PRODUCT PRESCRIBING ERROR
     Dosage: 0.25 MILLIGRAM, DAILY
     Route: 048
     Dates: start: 20200723, end: 20200727
  5. DULOXETINE BASE [Suspect]
     Active Substance: DULOXETINE
     Indication: PRODUCT PRESCRIBING ERROR
     Dosage: 30 MILLIGRAM, DAILY
     Route: 048
     Dates: start: 20200723, end: 20200727
  6. AMLODIPINE [Suspect]
     Active Substance: AMLODIPINE BESYLATE
     Indication: PRODUCT PRESCRIBING ERROR
     Dosage: 10 MILLIGRAM, DAILY
     Route: 048
     Dates: start: 20200723, end: 20200727
  7. ALTIZIDE [Suspect]
     Active Substance: ALTHIAZIDE
     Indication: PRODUCT PRESCRIBING ERROR
     Dosage: 15 MILLIGRAM, DAILY
     Route: 048
     Dates: start: 20200723, end: 20200727
  8. SOLIAN 200 MG, COMPRIME SECABLE [Suspect]
     Active Substance: AMISULPRIDE
     Indication: PRODUCT PRESCRIBING ERROR
     Dosage: 200 MILLIGRAM, DAILY
     Route: 048
     Dates: start: 20200723, end: 20200727

REACTIONS (9)
  - Anxiety [Not Recovered/Not Resolved]
  - Hypotension [Recovered/Resolved]
  - Hallucination [Not Recovered/Not Resolved]
  - Wrong patient received product [Recovered/Resolved]
  - Product prescribing error [Recovered/Resolved]
  - Chest discomfort [Not Recovered/Not Resolved]
  - Insomnia [Not Recovered/Not Resolved]
  - Somnolence [Recovered/Resolved]
  - Aggression [Not Recovered/Not Resolved]

NARRATIVE: CASE EVENT DATE: 20200723
